FAERS Safety Report 18571000 (Version 1)
Quarter: 2020Q4

REPORT INFORMATION
  Report Type: Spontaneous
  Country: US (occurrence: US)
  Receive Date: 20201202
  Receipt Date: 20201202
  Transmission Date: 20210114
  Serious: No
  Sender: FDA-Public Use
  Company Number: US-NOVEN PHARMACEUTICALS, INC.-2020US004958

PATIENT
  Sex: Female
  Weight: 63.49 kg

DRUGS (3)
  1. MINIVELLE [Suspect]
     Active Substance: ESTRADIOL
     Dosage: 0.05 MG, FREQUENCY UNKNOWN
     Route: 062
     Dates: start: 2017
  2. MINIVELLE [Suspect]
     Active Substance: ESTRADIOL
     Indication: HOT FLUSH
     Dosage: 0.0375 MG, FREQUENCY UNKNOWN
     Route: 062
     Dates: end: 2017
  3. MINIVELLE [Suspect]
     Active Substance: ESTRADIOL
     Dosage: 0.05 MG, FREQUENCY UNKNOWN
     Route: 062
     Dates: start: 2017

REACTIONS (2)
  - Therapeutic product ineffective [Recovered/Resolved]
  - No adverse event [Unknown]

NARRATIVE: CASE EVENT DATE: 2017
